FAERS Safety Report 18664348 (Version 1)
Quarter: 2020Q4

REPORT INFORMATION
  Report Type: Spontaneous
  Country: AT (occurrence: AT)
  Receive Date: 20201225
  Receipt Date: 20201225
  Transmission Date: 20210114
  Serious: Yes (Death)
  Sender: FDA-Public Use
  Company Number: AT-BAUSCH-BL-2020-037335

PATIENT
  Age: 51 Year
  Sex: Male

DRUGS (4)
  1. S-KETAMINE [Suspect]
     Active Substance: ESKETAMINE
     Indication: PRODUCT USED FOR UNKNOWN INDICATION
     Dosage: 50 MG, QOD (EVERY OTHER DAY)
     Route: 065
     Dates: start: 20191108, end: 20191110
  2. ABILIFY [Suspect]
     Active Substance: ARIPIPRAZOLE
     Indication: PRODUCT USED FOR UNKNOWN INDICATION
     Route: 065
     Dates: start: 20191111
  3. S-KETAMINE [Suspect]
     Active Substance: ESKETAMINE
     Dosage: 75 MG, QOD (EVERY OTHER DAY)
     Route: 065
     Dates: start: 20191112
  4. VENLAFAXIN [Suspect]
     Active Substance: VENLAFAXINE HYDROCHLORIDE
     Indication: PRODUCT USED FOR UNKNOWN INDICATION
     Route: 065

REACTIONS (1)
  - Completed suicide [Fatal]

NARRATIVE: CASE EVENT DATE: 20191114
